FAERS Safety Report 9705423 (Version 2)
Quarter: 2013Q4

REPORT INFORMATION
  Report Type: Spontaneous
  Country: US (occurrence: US)
  Receive Date: 20131122
  Receipt Date: 20131122
  Transmission Date: 20140711
  Serious: Yes (Disabling, Other)
  Sender: FDA-Public Use
  Company Number: US-009507513-0412USA00777

PATIENT
  Sex: Male

DRUGS (4)
  1. MK-0966 [Suspect]
     Dosage: 50 MG, QD
     Route: 048
     Dates: start: 20000420, end: 20000424
  2. MK-0966 [Suspect]
     Dosage: 25 MG, QD
     Route: 048
     Dates: start: 20000425
  3. KEFLEX [Concomitant]
     Indication: CELLULITIS
  4. ROXICET [Concomitant]
     Indication: OSTEOARTHRITIS

REACTIONS (19)
  - Cerebrovascular accident [Unknown]
  - Oedema [Recovered/Resolved]
  - Nausea [Unknown]
  - Depression [Unknown]
  - Hypertensive crisis [Recovering/Resolving]
  - Disorientation [Unknown]
  - Speech disorder [Unknown]
  - Erectile dysfunction [Unknown]
  - Gastritis [Unknown]
  - Anxiety [Unknown]
  - Dry mouth [Unknown]
  - Neurological symptom [Unknown]
  - Amnesia [Not Recovered/Not Resolved]
  - Insomnia [Unknown]
  - Reading disorder [Unknown]
  - Dysgraphia [Unknown]
  - Renal failure [Recovered/Resolved]
  - Hypoacusis [Not Recovered/Not Resolved]
  - Arthropathy [Unknown]
